FAERS Safety Report 11766898 (Version 1)
Quarter: 2015Q4

REPORT INFORMATION
  Report Type: Spontaneous
  Country: US (occurrence: None)
  Receive Date: 20151120
  Receipt Date: 20151120
  Transmission Date: 20160304
  Serious: No
  Sender: FDA-Public Use
  Company Number: None

PATIENT
  Age: 61 Year
  Sex: Female

DRUGS (4)
  1. ONDENSETRON [Concomitant]
     Active Substance: ONDANSETRON
  2. IBRANCE [Suspect]
     Active Substance: PALBOCICLIB
     Indication: NEOPLASM MALIGNANT
     Dosage: 125 MG QD ON 21 DAYS, OFF 7
     Route: 048
     Dates: start: 201510
  3. FASLODEX [Concomitant]
     Active Substance: FULVESTRANT
  4. ACYCLOVIR. [Concomitant]
     Active Substance: ACYCLOVIR

REACTIONS (6)
  - Contusion [None]
  - Alopecia [None]
  - Nasopharyngitis [None]
  - Dyspnoea [None]
  - Fatigue [None]
  - White blood cell count decreased [None]

NARRATIVE: CASE EVENT DATE: 201511
